FAERS Safety Report 6714506-3 (Version None)
Quarter: 2010Q2

REPORT INFORMATION
  Report Type: 
  Country: None (occurrence: None)
  Receive Date: 20100506
  Receipt Date: 20100427
  Transmission Date: 20101027
  Serious: Yes (Hospitalization)
  Sender: FDA-Public Use
  Company Number: US-WATSON-2010-05786

PATIENT
  Sex: Female
  Weight: 90.703 kg

DRUGS (8)
  1. HYDROXYCHLOROQUINE SULFATE (WATSON LABORATORIES) [Suspect]
     Indication: OSTEOARTHRITIS
     Dosage: 200 MG, DAILY
     Route: 048
     Dates: start: 20100224, end: 20100319
  2. ANTIBIOTICS [Suspect]
     Indication: ACUTE FEBRILE NEUTROPHILIC DERMATOSIS
     Dosage: 1 TABLET DAILY (TOOK TOTAL OF 2-3 DOSES)
     Route: 048
     Dates: start: 20100324, end: 20100326
  3. UNASYN [Suspect]
     Indication: ABSCESS
     Dosage: 3 GRAMS Q 6 HOURS
     Route: 042
     Dates: start: 20100418, end: 20100419
  4. BENADRYL [Suspect]
     Indication: DRUG USE FOR UNKNOWN INDICATION
     Dosage: UNK
     Route: 048
     Dates: start: 20100401, end: 20100401
  5. LEVOTHYROXINE SODIUM [Concomitant]
     Indication: HYPOTHYROIDISM
     Dosage: 0.075 MG, DAILY
     Route: 048
  6. PRILOSEC                           /00661201/ [Concomitant]
     Indication: GASTROOESOPHAGEAL REFLUX DISEASE
     Dosage: 20 MG, DAILY
     Route: 048
  7. TRIAMTERENE AND HYDROCHLOROTHIAZIDE [Concomitant]
     Indication: BLOOD PRESSURE INCREASED
     Dosage: 37.5/25 MG DAILY
     Route: 048
  8. CYMBALTA [Concomitant]
     Dosage: 20 MG, DAILY
     Dates: start: 20070101

REACTIONS (18)
  - ABSCESS [None]
  - ACUTE FEBRILE NEUTROPHILIC DERMATOSIS [None]
  - ACUTE GENERALISED EXANTHEMATOUS PUSTULOSIS [None]
  - FEELING ABNORMAL [None]
  - FEELING COLD [None]
  - FEELING HOT [None]
  - GENERALISED ERYTHEMA [None]
  - HYPERSENSITIVITY [None]
  - INSOMNIA [None]
  - PAIN [None]
  - PRURITUS [None]
  - PYREXIA [None]
  - RASH MACULAR [None]
  - RASH PRURITIC [None]
  - STAPHYLOCOCCAL INFECTION [None]
  - SUNBURN [None]
  - SWELLING [None]
  - WHITE BLOOD CELL COUNT INCREASED [None]
